FAERS Safety Report 8086737-4 (Version None)
Quarter: 2012Q1

REPORT INFORMATION
  Report Type: 
  Country: None (occurrence: None)
  Receive Date: 20120128
  Receipt Date: 20110610
  Transmission Date: 20120608
  Serious: No
  Sender: FDA-Public Use
  Company Number: US-ABBOTT-11P-163-0731905-00

PATIENT
  Sex: Female

DRUGS (14)
  1. MULTI-VITAMIN [Concomitant]
     Indication: PRODUCT USED FOR UNKNOWN INDICATION
  2. CRANBERRY [Concomitant]
     Indication: VITAMIN SUPPLEMENTATION
  3. SYNTHROID [Concomitant]
     Indication: HYPOTHYROIDISM
  4. CALCIUM WITH VITAMIN D [Concomitant]
     Indication: PRODUCT USED FOR UNKNOWN INDICATION
     Dosage: 6000MG/400IIU
  5. ASCORBIC ACID [Concomitant]
     Indication: PRODUCT USED FOR UNKNOWN INDICATION
  6. TRICOR [Concomitant]
     Indication: BLOOD TRIGLYCERIDES
  7. ESTROVEN MAX [Concomitant]
     Indication: HOT FLUSH
  8. TRICOR [Concomitant]
     Indication: BLOOD CHOLESTEROL INCREASED
  9. VITAMIN D [Concomitant]
     Indication: PRODUCT USED FOR UNKNOWN INDICATION
  10. GLUCOSAMINE CONDROITIN [Concomitant]
     Indication: ARTHRALGIA
     Dosage: 1500MG.1200MG
  11. LOTEMAX [Concomitant]
     Indication: DRY EYE
     Route: 047
  12. HUMIRA [Suspect]
     Indication: PSORIATIC ARTHROPATHY
     Dosage: DAY ONE
     Route: 058
     Dates: start: 20110607
  13. FISH OIL [Concomitant]
     Indication: PRODUCT USED FOR UNKNOWN INDICATION
  14. RESTASIS [Concomitant]
     Indication: DRY EYE
     Route: 047

REACTIONS (1)
  - INJECTION SITE PAIN [None]
